FAERS Safety Report 23581505 (Version 1)
Quarter: 2024Q1

REPORT INFORMATION
  Report Type: Report from Study
  Country: AT (occurrence: AT)
  Receive Date: 20240229
  Receipt Date: 20240229
  Transmission Date: 20240410
  Serious: Yes (Hospitalization, Other)
  Sender: FDA-Public Use
  Company Number: AT-SUN PHARMACEUTICAL INDUSTRIES LTD-2024R1-433944

PATIENT
  Age: 75 Year
  Sex: Male

DRUGS (1)
  1. TRIAMCINOLONE [Suspect]
     Active Substance: TRIAMCINOLONE
     Indication: Intervertebral disc operation
     Dosage: UNK (1 ML)
     Route: 065

REACTIONS (2)
  - Pseudomeningocele [Recovered/Resolved]
  - Off label use [Unknown]
